FAERS Safety Report 21961728 (Version 2)
Quarter: 2023Q2

REPORT INFORMATION
  Report Type: Report from Study
  Country: US (occurrence: US)
  Receive Date: 20230207
  Receipt Date: 20230512
  Transmission Date: 20230721
  Serious: Yes (Other)
  Sender: FDA-Public Use
  Company Number: US-KADMON-US-KAD-22-00737

PATIENT
  Age: 71 Year
  Sex: Male

DRUGS (9)
  1. BELUMOSUDIL MESYLATE [Suspect]
     Active Substance: BELUMOSUDIL MESYLATE
     Indication: Chronic graft versus host disease
     Dosage: 200 MG, TOTAL, ONCE
     Route: 048
     Dates: start: 20220528
  2. BELUMOSUDIL MESYLATE [Suspect]
     Active Substance: BELUMOSUDIL MESYLATE
     Indication: Acute myeloid leukaemia
  3. AMANTADINE HYDROCHLORIDE [Concomitant]
     Active Substance: AMANTADINE HYDROCHLORIDE
     Indication: Product used for unknown indication
     Dosage: 100 MG, QD
     Route: 048
     Dates: start: 20220528
  4. ATORVASTATIN CALCIUM [Concomitant]
     Active Substance: ATORVASTATIN CALCIUM
     Indication: Product used for unknown indication
     Dosage: 10 MG, QD
  5. CASODEX [Concomitant]
     Active Substance: BICALUTAMIDE
     Indication: Product used for unknown indication
     Dosage: 50 MG, QD
  6. SINEMET [Concomitant]
     Active Substance: CARBIDOPA\LEVODOPA
     Indication: Product used for unknown indication
     Dosage: 25-100 MILLIGRAM, QD
  7. VITAMINS NOS [Concomitant]
     Active Substance: VITAMINS
     Indication: Product used for unknown indication
     Dosage: UNK, QD
  8. FISH OIL [Concomitant]
     Active Substance: FISH OIL
     Indication: Product used for unknown indication
     Dosage: 1000 MG, QD
  9. LUPRON [Concomitant]
     Active Substance: LEUPROLIDE ACETATE

REACTIONS (4)
  - Graft versus host disease [Recovering/Resolving]
  - Condition aggravated [Recovering/Resolving]
  - Dizziness [Recovering/Resolving]
  - Visual impairment [Recovering/Resolving]
